FAERS Safety Report 11179584 (Version 1)
Quarter: 2015Q2

REPORT INFORMATION
  Report Type: Report from Study
  Country: US (occurrence: US)
  Receive Date: 20150611
  Receipt Date: 20150611
  Transmission Date: 20150821
  Serious: Yes (Hospitalization, Other)
  Sender: FDA-Public Use
  Company Number: US-GILEAD-2015-0156965

PATIENT
  Age: 65 Year
  Sex: Male

DRUGS (17)
  1. LEVOFLOXACIN. [Concomitant]
     Active Substance: LEVOFLOXACIN
  2. CALCIUM ACETATE. [Concomitant]
     Active Substance: CALCIUM ACETATE
  3. HUMULIN NOS [Concomitant]
     Active Substance: INSULIN HUMAN
  4. JANTOVEN [Concomitant]
     Active Substance: WARFARIN SODIUM
  5. LEVOTHYROXINE [Concomitant]
     Active Substance: LEVOTHYROXINE
  6. TYLENOL [Concomitant]
     Active Substance: ACETAMINOPHEN
  7. CILOSTAZOL. [Concomitant]
     Active Substance: CILOSTAZOL
  8. HYDRALAZINE [Concomitant]
     Active Substance: HYDRALAZINE HYDROCHLORIDE
  9. HYDROCODONE [Concomitant]
     Active Substance: HYDROCODONE
  10. AMBRISENTAN [Suspect]
     Active Substance: AMBRISENTAN
     Indication: PULMONARY ARTERIAL HYPERTENSION
     Dosage: 10 MG, QD
     Route: 065
     Dates: start: 20120804
  11. DOXAZOSIN [Concomitant]
     Active Substance: DOXAZOSIN\DOXAZOSIN MESYLATE
  12. ULORIC [Concomitant]
     Active Substance: FEBUXOSTAT
  13. ASPIRIN                            /00002701/ [Concomitant]
     Active Substance: ASPIRIN
  14. SERTRALINE [Concomitant]
     Active Substance: SERTRALINE HYDROCHLORIDE
  15. PRAVASTATIN [Concomitant]
     Active Substance: PRAVASTATIN\PRAVASTATIN SODIUM
  16. METOPROLOL SUCCINATE. [Concomitant]
     Active Substance: METOPROLOL SUCCINATE
  17. AMLODIPINE [Concomitant]
     Active Substance: AMLODIPINE BESYLATE

REACTIONS (4)
  - Unevaluable event [Unknown]
  - Dyspnoea [Unknown]
  - Fluid overload [Unknown]
  - Vascular graft [Unknown]

NARRATIVE: CASE EVENT DATE: 20150602
